FAERS Safety Report 17579636 (Version 1)
Quarter: 2020Q1

REPORT INFORMATION
  Report Type: Spontaneous
  Country: GB (occurrence: GB)
  Receive Date: 20200325
  Receipt Date: 20200325
  Transmission Date: 20200409
  Serious: Yes (Life-Threatening)
  Sender: FDA-Public Use
  Company Number: GB-TEVA-2020-GB-1208751

PATIENT
  Age: 73 Year
  Sex: Female
  Weight: 57.6 kg

DRUGS (13)
  1. FERROUS FUMARATE [Concomitant]
     Active Substance: FERROUS FUMARATE
  2. LATANOPROST. [Concomitant]
     Active Substance: LATANOPROST
  3. TIMOLOL MALEATE. [Concomitant]
     Active Substance: TIMOLOL MALEATE
  4. OMEPRAZOLE. [Concomitant]
     Active Substance: OMEPRAZOLE
  5. ADIZEM [Concomitant]
     Active Substance: DILTIAZEM HYDROCHLORIDE
  6. CASSIA [Concomitant]
  7. MORPHINE [Concomitant]
     Active Substance: MORPHINE
  8. BRALTUS [Concomitant]
     Active Substance: TIOTROPIUM BROMIDE
  9. PRAMIPEXOLE. [Suspect]
     Active Substance: PRAMIPEXOLE
     Indication: RESTLESS LEGS SYNDROME
     Dosage: 88 MCG
     Route: 048
     Dates: start: 20200228, end: 20200304
  10. AMITRIPTYLINE [Concomitant]
     Active Substance: AMITRIPTYLINE
  11. LEVOTHYROXINE SODIUM. [Concomitant]
     Active Substance: LEVOTHYROXINE SODIUM
  12. NAPROXEN. [Concomitant]
     Active Substance: NAPROXEN
  13. DUORESP SPIROMAX [Concomitant]
     Active Substance: BUDESONIDE\FORMOTEROL

REACTIONS (4)
  - Extrasystoles [Recovered/Resolved]
  - Dyspnoea [Unknown]
  - Bradycardia [Recovered/Resolved]
  - Fatigue [Unknown]

NARRATIVE: CASE EVENT DATE: 20200303
